FAERS Safety Report 14507015 (Version 15)
Quarter: 2019Q3

REPORT INFORMATION
  Report Type: Spontaneous
  Country: US (occurrence: US)
  Receive Date: 20180208
  Receipt Date: 20190916
  Transmission Date: 20191004
  Serious: Yes (Other)
  Sender: FDA-Public Use
  Company Number: US-INCYTE CORPORATION-2018IN000834

PATIENT

DRUGS (28)
  1. OLMESARTAN [Concomitant]
     Active Substance: OLMESARTAN
     Indication: PRODUCT USED FOR UNKNOWN INDICATION
     Route: 065
  2. BABY ASPIRIN [Concomitant]
     Active Substance: ASPIRIN
     Indication: PRODUCT USED FOR UNKNOWN INDICATION
     Route: 065
  3. TIMOLOL MALEATE. [Concomitant]
     Active Substance: TIMOLOL MALEATE
     Indication: PRODUCT USED FOR UNKNOWN INDICATION
     Route: 065
  4. JAKAFI [Suspect]
     Active Substance: RUXOLITINIB
     Dosage: 10 MILLIGRAM, QD
     Route: 048
     Dates: start: 20180127
  5. MAGNESIUM [Concomitant]
     Active Substance: MAGNESIUM
     Indication: PRODUCT USED FOR UNKNOWN INDICATION
     Route: 065
  6. JAKAFI [Suspect]
     Active Substance: RUXOLITINIB
     Dosage: 10 MG, BID
     Route: 048
  7. VITAMIN D3 [Concomitant]
     Active Substance: CHOLECALCIFEROL
     Indication: PRODUCT USED FOR UNKNOWN INDICATION
     Route: 065
  8. ELAVIL [Concomitant]
     Active Substance: AMITRIPTYLINE HYDROCHLORIDE
     Indication: PRODUCT USED FOR UNKNOWN INDICATION
     Route: 065
  9. HYDROXYUREA. [Concomitant]
     Active Substance: HYDROXYUREA
     Indication: PRODUCT USED FOR UNKNOWN INDICATION
     Route: 065
  10. COQ 10 [Concomitant]
     Active Substance: UBIDECARENONE
     Indication: PRODUCT USED FOR UNKNOWN INDICATION
     Route: 065
  11. JAKAFI [Suspect]
     Active Substance: RUXOLITINIB
     Dosage: 10 MG, BID
     Route: 048
     Dates: start: 20180127
  12. JAKAFI [Suspect]
     Active Substance: RUXOLITINIB
     Dosage: 10 MG, QD
     Route: 048
     Dates: start: 20190110
  13. AZOR                               /00595201/ [Concomitant]
     Active Substance: ALPRAZOLAM
     Indication: PRODUCT USED FOR UNKNOWN INDICATION
     Route: 065
  14. VITAMIN C [Concomitant]
     Active Substance: ASCORBIC ACID
     Indication: PRODUCT USED FOR UNKNOWN INDICATION
     Dosage: UNK
     Route: 065
  15. JAKAFI [Suspect]
     Active Substance: RUXOLITINIB
     Indication: MYELOFIBROSIS
     Dosage: 5 MG, BID
     Route: 048
     Dates: start: 20171212
  16. JAKAFI [Suspect]
     Active Substance: RUXOLITINIB
     Dosage: TWO 5 MG TABLETS TWICE DAILY
     Route: 065
  17. ALLOPURINOL. [Concomitant]
     Active Substance: ALLOPURINOL
     Indication: PRODUCT USED FOR UNKNOWN INDICATION
     Route: 065
  18. METOPROLOL SUCCINATE. [Concomitant]
     Active Substance: METOPROLOL SUCCINATE
     Indication: PRODUCT USED FOR UNKNOWN INDICATION
     Route: 065
  19. JAKAFI [Suspect]
     Active Substance: RUXOLITINIB
     Dosage: 5 MG QAM AND 10 MG QPM
     Route: 048
     Dates: start: 20180830
  20. MILK THISTLE PLUS                  /08512201/ [Concomitant]
     Indication: PRODUCT USED FOR UNKNOWN INDICATION
     Route: 065
  21. LACTOBACILLUS [Concomitant]
     Active Substance: LACTOBACILLUS ACIDOPHILUS
     Indication: PRODUCT USED FOR UNKNOWN INDICATION
     Route: 065
  22. SYNTHROID [Concomitant]
     Active Substance: LEVOTHYROXINE SODIUM
     Indication: PRODUCT USED FOR UNKNOWN INDICATION
     Route: 065
  23. JAKAFI [Suspect]
     Active Substance: RUXOLITINIB
     Dosage: 5 MG, BID
     Route: 065
  24. FISH OIL [Concomitant]
     Active Substance: FISH OIL
     Indication: PRODUCT USED FOR UNKNOWN INDICATION
     Route: 065
  25. METOPROLOL. [Concomitant]
     Active Substance: METOPROLOL
     Indication: PRODUCT USED FOR UNKNOWN INDICATION
     Route: 065
  26. JAKAFI [Suspect]
     Active Substance: RUXOLITINIB
     Indication: POLYCYTHAEMIA VERA
     Dosage: 10 MG, BID
     Route: 065
     Dates: start: 20180125
  27. JAKAFI [Suspect]
     Active Substance: RUXOLITINIB
     Dosage: 10 MILLIGRAM, BID
     Route: 065
     Dates: start: 20180127, end: 20190425
  28. PROBIOTIC                          /06395501/ [Suspect]
     Active Substance: BIFIDOBACTERIUM ANIMALIS LACTIS
     Indication: PRODUCT USED FOR UNKNOWN INDICATION
     Dosage: UNK
     Route: 065

REACTIONS (25)
  - Basal cell carcinoma [Not Recovered/Not Resolved]
  - Mean cell volume abnormal [Unknown]
  - Red blood cell count abnormal [Unknown]
  - Blood lactate dehydrogenase abnormal [Unknown]
  - Incorrect dose administered [Unknown]
  - Leukaemia [Unknown]
  - Feeling hot [Unknown]
  - Red cell distribution width abnormal [Unknown]
  - Full blood count abnormal [Unknown]
  - Fall [Unknown]
  - White blood cell count increased [Not Recovered/Not Resolved]
  - Haematocrit abnormal [Unknown]
  - Red blood cell analysis abnormal [Unknown]
  - Diarrhoea [Unknown]
  - Full blood count decreased [Unknown]
  - Abdominal discomfort [Unknown]
  - White blood cell count abnormal [Unknown]
  - Product dose omission [Unknown]
  - Contusion [Not Recovered/Not Resolved]
  - Platelet count decreased [Recovering/Resolving]
  - Arthritis [Not Recovered/Not Resolved]
  - Abdominal pain upper [Unknown]
  - Balance disorder [Unknown]
  - Headache [Unknown]
  - Haemoglobin abnormal [Unknown]

NARRATIVE: CASE EVENT DATE: 201801
